FAERS Safety Report 8491869-2 (Version None)
Quarter: 2012Q3

REPORT INFORMATION
  Report Type: 
  Country: None (occurrence: None)
  Receive Date: 20120706
  Receipt Date: 20110826
  Transmission Date: 20120928
  Serious: No
  Sender: FDA-Public Use
  Company Number: US-GLAXOSMITHKLINE-A0942518A

PATIENT
  Age: 7 Year
  Sex: Female

DRUGS (1)
  1. FLOVENT [Suspect]
     Indication: ASTHMA
     Dosage: 2PUFF TWICE PER DAY
     Route: 055
     Dates: start: 20040101

REACTIONS (6)
  - RHINORRHOEA [None]
  - RESPIRATORY TRACT INFECTION [None]
  - BLOOD CORTISOL ABNORMAL [None]
  - GROWTH RETARDATION [None]
  - EPISTAXIS [None]
  - FUNGAL INFECTION [None]
